FAERS Safety Report 15328022 (Version 2)
Quarter: 2018Q3

REPORT INFORMATION
  Report Type: Spontaneous
  Country: PL (occurrence: PL)
  Receive Date: 20180828
  Receipt Date: 20180904
  Transmission Date: 20181010
  Serious: Yes (Death)
  Sender: FDA-Public Use
  Company Number: PL-BEH-2018094277

PATIENT
  Age: 59 Year
  Sex: Female

DRUGS (6)
  1. HUMAN IMMUNOGLOBULIN (INN) [Suspect]
     Active Substance: HUMAN IMMUNOGLOBULIN G
     Indication: STEVENS-JOHNSON SYNDROME
     Dosage: UNK
     Route: 042
     Dates: start: 201712
  2. VORICONAZOLE. [Concomitant]
     Active Substance: VORICONAZOLE
     Route: 042
  3. LINEZOLID. [Concomitant]
     Active Substance: LINEZOLID
     Route: 065
  4. GRANULOCYTE COLONY STIMULATING FACTOR [Suspect]
     Active Substance: GRANULOCYTE COLONY-STIMULATING FACTOR NOS
     Dosage: UNK
     Route: 065
     Dates: start: 201712
  5. AMIODARONE [Concomitant]
     Active Substance: AMIODARONE
     Route: 065
  6. MEROPENEM. [Concomitant]
     Active Substance: MEROPENEM
     Route: 042

REACTIONS (1)
  - Drug ineffective for unapproved indication [Fatal]

NARRATIVE: CASE EVENT DATE: 201712
